FAERS Safety Report 5676717-8 (Version None)
Quarter: 2008Q1

REPORT INFORMATION
  Report Type: 
  Country: None (occurrence: None)
  Receive Date: 20080318
  Receipt Date: 20080310
  Transmission Date: 20080703
  Serious: Yes (Hospitalization, Other)
  Sender: FDA-Public Use
  Company Number: 167-C5013-07031177

PATIENT
  Age: 63 Year
  Sex: Male

DRUGS (9)
  1. CC-5013 (LENALIDOMIDE) (CAPSULES) [Suspect]
     Indication: MULTIPLE MYELOMA
     Dosage: ALT DAY, ORAL : DAILY
     Route: 048
     Dates: start: 20060801, end: 20060826
  2. CC-5013 (LENALIDOMIDE) (CAPSULES) [Suspect]
     Indication: MULTIPLE MYELOMA
     Dosage: ALT DAY, ORAL : DAILY
     Route: 048
     Dates: start: 20060904
  3. ITRACONAZOLE [Concomitant]
  4. VALACYCLOVIR [Concomitant]
  5. CIPROFLOXACIN [Concomitant]
  6. NEULASTA [Concomitant]
  7. CYCLOPHOSPHAMIDE [Concomitant]
  8. ARANESP [Concomitant]
  9. WARFARIN SODIUM [Concomitant]

REACTIONS (4)
  - ANAEMIA [None]
  - FEBRILE NEUTROPENIA [None]
  - JOINT EFFUSION [None]
  - PULMONARY EMBOLISM [None]
